FAERS Safety Report 15547972 (Version 2)
Quarter: 2018Q4

REPORT INFORMATION
  Report Type: Report from Study
  Country: CO (occurrence: CO)
  Receive Date: 20181024
  Receipt Date: 20181128
  Transmission Date: 20190205
  Serious: Yes (Other)
  Sender: FDA-Public Use
  Company Number: CO-SA-2017SA160510

PATIENT
  Age: 52 Year
  Sex: Female

DRUGS (1)
  1. ALEMTUZUMAB [Suspect]
     Active Substance: ALEMTUZUMAB
     Indication: MULTIPLE SCLEROSIS
     Dosage: 12 MG,QD
     Route: 041
     Dates: start: 20170510, end: 20170512

REACTIONS (11)
  - Haematuria [Recovered/Resolved]
  - Nitrite urine present [Recovered/Resolved]
  - Crystal urine present [Not Recovered/Not Resolved]
  - Urinary tract infection bacterial [Recovered/Resolved]
  - Red blood cells urine [Not Recovered/Not Resolved]
  - Bacterial test positive [Recovered/Resolved]
  - Lymphocyte count decreased [Recovered/Resolved]
  - Blood thyroid stimulating hormone increased [Unknown]
  - Urobilinogen urine increased [Recovered/Resolved]
  - Leukocyturia [Not Recovered/Not Resolved]
  - White blood cell count decreased [Not Recovered/Not Resolved]

NARRATIVE: CASE EVENT DATE: 20170826
